FAERS Safety Report 23283844 (Version 2)
Quarter: 2024Q1

REPORT INFORMATION
  Report Type: Spontaneous
  Country: RO (occurrence: RO)
  Receive Date: 20231211
  Receipt Date: 20240118
  Transmission Date: 20240410
  Serious: Yes (Hospitalization)
  Sender: FDA-Public Use
  Company Number: RO-ALNYLAM PHARMACEUTICALS, INC.-ALN-2023-006525

PATIENT

DRUGS (3)
  1. GIVLAARI [Suspect]
     Active Substance: GIVOSIRAN SODIUM
     Indication: Porphyria acute
     Dosage: UNK, MONTHLY
     Route: 058
     Dates: start: 20221128, end: 20231118
  2. ENOXAPARIN SODIUM [Suspect]
     Active Substance: ENOXAPARIN SODIUM
     Indication: Intervertebral disc protrusion
     Dosage: 4000 INTERNATIONAL UNIT, QD
     Route: 065
     Dates: start: 20231107, end: 20231123
  3. ASPIRIN [Concomitant]
     Active Substance: ASPIRIN
     Indication: Product used for unknown indication
     Dosage: 75 MILLIGRAM (TEMPORAL DISCONTINUED FORM7- 24NOV2023), QD
     Route: 065
     Dates: start: 20231107, end: 20231124

REACTIONS (6)
  - Intervertebral disc protrusion [Unknown]
  - Injection site haematoma [Not Recovered/Not Resolved]
  - Injection site discolouration [Unknown]
  - Injection site pain [Unknown]
  - Injection site induration [Unknown]
  - Drug interaction [Unknown]

NARRATIVE: CASE EVENT DATE: 20231118
